FAERS Safety Report 6341604-9 (Version None)
Quarter: 2009Q3

REPORT INFORMATION
  Report Type: 
  Country: None (occurrence: None)
  Receive Date: 20090902
  Receipt Date: 20090902
  Transmission Date: 20100115
  Serious: Yes (Hospitalization)
  Sender: FDA-Public Use
  Company Number: None

PATIENT
  Age: 34 Year
  Sex: Male

DRUGS (1)
  1. FENTANYL TRANSDERMAL SYSTEM [Suspect]
     Dosage: APPLY 1 PATCH EVERY 72 HOURS AS NEEDED FOR PAIN.
     Route: 062

REACTIONS (6)
  - CHOKING [None]
  - DRUG EFFECT INCREASED [None]
  - HYPERHIDROSIS [None]
  - INCONTINENCE [None]
  - PRODUCT QUALITY ISSUE [None]
  - TREMOR [None]
